FAERS Safety Report 24114795 (Version 1)
Quarter: 2024Q3

REPORT INFORMATION
  Report Type: Spontaneous
  Country: US (occurrence: US)
  Receive Date: 20240721
  Receipt Date: 20240721
  Transmission Date: 20241017
  Serious: Yes (Hospitalization)
  Sender: DR REDDYS
  Company Number: US-DRL-USA-LIT/USA/24/0010632

PATIENT
  Age: 60 Year
  Sex: Male

DRUGS (15)
  1. CIPROFLOXACIN [Suspect]
     Active Substance: CIPROFLOXACIN
     Indication: Salmonella bacteraemia
     Route: 048
  2. CIPROFLOXACIN [Suspect]
     Active Substance: CIPROFLOXACIN
     Indication: Gastroenteritis salmonella
     Route: 048
  3. CIPROFLOXACIN [Suspect]
     Active Substance: CIPROFLOXACIN
     Route: 048
  4. CIPROFLOXACIN [Suspect]
     Active Substance: CIPROFLOXACIN
     Route: 048
  5. MEROPENEM [Concomitant]
     Active Substance: MEROPENEM
     Indication: Salmonella bacteraemia
  6. MEROPENEM [Concomitant]
     Active Substance: MEROPENEM
     Indication: Gastroenteritis salmonella
  7. CEFTRIAXONE [Concomitant]
     Active Substance: CEFTRIAXONE\CEFTRIAXONE SODIUM
     Indication: Salmonella bacteraemia
  8. CEFTRIAXONE [Concomitant]
     Active Substance: CEFTRIAXONE\CEFTRIAXONE SODIUM
     Indication: Gastroenteritis salmonella
  9. ERTAPENEM [Concomitant]
     Active Substance: ERTAPENEM
     Indication: Infection
     Route: 042
  10. ERTAPENEM [Concomitant]
     Active Substance: ERTAPENEM
     Indication: Gastroenteritis salmonella
  11. CEFOTAXIME [Concomitant]
     Active Substance: CEFOTAXIME SODIUM
     Indication: Salmonella bacteraemia
  12. CEFOTAXIME [Concomitant]
     Active Substance: CEFOTAXIME SODIUM
     Indication: Gastroenteritis salmonella
  13. AMPICILLIN [Concomitant]
     Active Substance: AMPICILLIN
     Indication: Salmonella bacteraemia
  14. AMPICILLIN [Concomitant]
     Active Substance: AMPICILLIN
     Indication: Gastroenteritis salmonella
  15. WARFARIN [Concomitant]
     Active Substance: WARFARIN
     Indication: Atrial fibrillation

REACTIONS (2)
  - Drug resistance [Unknown]
  - Product use in unapproved indication [Unknown]
